FAERS Safety Report 9553349 (Version 1)
Quarter: 2013Q3

REPORT INFORMATION
  Report Type: Spontaneous
  Country: US (occurrence: US)
  Receive Date: 20130925
  Receipt Date: 20130925
  Transmission Date: 20140515
  Serious: No
  Sender: FDA-Public Use
  Company Number: US-PFIZER INC-2013274887

PATIENT
  Age: 73 Year
  Sex: Female

DRUGS (4)
  1. ESTRING [Suspect]
     Indication: ATROPHIC VULVOVAGINITIS
     Dosage: UNK
     Dates: start: 2011
  2. DIVIGEL [Suspect]
     Indication: ATROPHIC VULVOVAGINITIS
     Dosage: 0.25 MG, 1X/DAY (QD)
     Route: 061
     Dates: start: 2011
  3. LISINOPRIL [Concomitant]
     Dosage: UNK
  4. VITAMINS NOS [Concomitant]
     Dosage: UNK

REACTIONS (1)
  - Alopecia [Not Recovered/Not Resolved]
